FAERS Safety Report 16174381 (Version 3)
Quarter: 2019Q2

REPORT INFORMATION
  Report Type: Spontaneous
  Country: US (occurrence: US)
  Receive Date: 20190409
  Receipt Date: 20190521
  Transmission Date: 20190711
  Serious: Yes (Other)
  Sender: FDA-Public Use
  Company Number: US-ALLERGAN-1915248US

PATIENT
  Sex: Female
  Weight: 51.7 kg

DRUGS (4)
  1. BOTOX COSMETIC [Suspect]
     Active Substance: ONABOTULINUMTOXINA
     Indication: SKIN WRINKLING
     Dosage: 6 UNITS, SINGLE (2 UNITS PER SITE)
     Route: 030
     Dates: start: 20190405, end: 20190405
  2. BOTOX COSMETIC [Suspect]
     Active Substance: ONABOTULINUMTOXINA
     Indication: SKIN WRINKLING
     Dosage: 8 UNITS, SINGLE
     Route: 030
     Dates: start: 20190405, end: 20190405
  3. FISH OIL [Concomitant]
     Active Substance: FISH OIL
  4. VITAMINS [Concomitant]
     Active Substance: VITAMINS

REACTIONS (4)
  - Syncope [Recovered/Resolved]
  - Seizure [Recovered/Resolved]
  - Respiratory arrest [Recovered/Resolved]
  - Blood pressure decreased [Recovered/Resolved]

NARRATIVE: CASE EVENT DATE: 20190405
